FAERS Safety Report 13434266 (Version 1)
Quarter: 2017Q2

REPORT INFORMATION
  Report Type: Spontaneous
  Country: US (occurrence: US)
  Receive Date: 20170413
  Receipt Date: 20170413
  Transmission Date: 20170830
  Serious: No
  Sender: FDA-Public Use
  Company Number: US-FERRINGPH-2016FE01393

PATIENT
  Sex: Male
  Weight: 78.5 kg

DRUGS (1)
  1. FIRMAGON [Suspect]
     Active Substance: DEGARELIX ACETATE
     Indication: PROSTATE CANCER
     Dosage: 240 MG, MONTHLY
     Route: 058

REACTIONS (5)
  - Injection site mass [Not Recovered/Not Resolved]
  - Injection site induration [Not Recovered/Not Resolved]
  - Waist circumference increased [Not Recovered/Not Resolved]
  - Off label use [Unknown]
  - Injection site pain [Not Recovered/Not Resolved]
